FAERS Safety Report 6823801-9 (Version None)
Quarter: 2010Q3

REPORT INFORMATION
  Report Type: 
  Country: None (occurrence: None)
  Receive Date: 20100708
  Receipt Date: 20060905
  Transmission Date: 20110219
  Serious: No
  Sender: FDA-Public Use
  Company Number: US-PFIZER INC-2006109703

PATIENT
  Sex: Female
  Weight: 72.57 kg

DRUGS (5)
  1. VARENICLINE [Suspect]
     Indication: EX-TOBACCO USER
     Dates: start: 20060823
  2. LAXATIVES [Suspect]
     Indication: CONSTIPATION
     Dates: start: 20060101
  3. ANTIHYPERTENSIVES [Concomitant]
  4. THYROID TAB [Concomitant]
  5. MERIDIA [Concomitant]

REACTIONS (3)
  - CONSTIPATION [None]
  - FEELING ABNORMAL [None]
  - FLATULENCE [None]
